FAERS Safety Report 5119972-5 (Version None)
Quarter: 2006Q3

REPORT INFORMATION
  Report Type: 
  Country: None (occurrence: None)
  Receive Date: 20060929
  Receipt Date: 20060919
  Transmission Date: 20061208
  Serious: Yes (Hospitalization, Other)
  Sender: FDA-Public Use
  Company Number: 2006113960

PATIENT
  Age: 44 Year
  Sex: Female
  Weight: 70 kg

DRUGS (3)
  1. GENOTROPIN [Suspect]
     Indication: HYPOPITUITARISM
     Dosage: 0.2 MG (1 IN 1 D), SUBCUTANEOUS
     Route: 058
     Dates: start: 20060424, end: 20060914
  2. PREDNISON (PREDNSONE) [Concomitant]
  3. HYDROCORTISONE [Concomitant]

REACTIONS (1)
  - ANGIONEUROTIC OEDEMA [None]
